FAERS Safety Report 5104230-5 (Version None)
Quarter: 2006Q3

REPORT INFORMATION
  Report Type: 
  Country: None (occurrence: None)
  Receive Date: 20060911
  Receipt Date: 20060828
  Transmission Date: 20061208
  Serious: Yes (Other)
  Sender: FDA-Public Use
  Company Number: 2006BI012264

PATIENT
  Age: 46 Year
  Sex: Female

DRUGS (1)
  1. AVONEX [Suspect]
     Indication: RELAPSING-REMITTING MULTIPLE SCLEROSIS
     Dosage: 30 UG; QW; IM
     Route: 030
     Dates: start: 20060202

REACTIONS (10)
  - FEELING ABNORMAL [None]
  - FLUSHING [None]
  - HYPERSENSITIVITY [None]
  - HYPOVENTILATION [None]
  - INFLUENZA LIKE ILLNESS [None]
  - MOVEMENT DISORDER [None]
  - MUSCLE SPASMS [None]
  - OCULAR HYPERAEMIA [None]
  - PAIN [None]
  - SPEECH DISORDER [None]
